FAERS Safety Report 18032726 (Version 2)
Quarter: 2020Q3

REPORT INFORMATION
  Report Type: Spontaneous
  Country: RO (occurrence: RO)
  Receive Date: 20200716
  Receipt Date: 20200721
  Transmission Date: 20201103
  Serious: Yes (Hospitalization, Other)
  Sender: FDA-Public Use
  Company Number: RO-MYLANLABS-2020M1061051

PATIENT
  Age: 76 Year
  Sex: Male

DRUGS (3)
  1. IBUPROFEN. [Suspect]
     Active Substance: IBUPROFEN
     Indication: INFLUENZA LIKE ILLNESS
     Dosage: 1200 MILLIGRAM
  2. IBUPROFEN. [Suspect]
     Active Substance: IBUPROFEN
     Indication: RESPIRATORY TRACT INFECTION
     Dosage: 600 MILLIGRAM , (2 TABLETS DAILY SELF?AMINISTERED))
     Route: 048
     Dates: start: 201602
  3. IBUPROFEN. [Suspect]
     Active Substance: IBUPROFEN
     Indication: UPPER RESPIRATORY TRACT INFECTION

REACTIONS (10)
  - Rectal haemorrhage [Recovered/Resolved]
  - Anal ulcer haemorrhage [Recovered/Resolved]
  - Anaemia [Recovered/Resolved]
  - Intentional product misuse [Recovered/Resolved]
  - Anorectal discomfort [Recovered/Resolved]
  - Lower gastrointestinal haemorrhage [Recovered/Resolved]
  - Rectal ulcer haemorrhage [Recovered/Resolved]
  - Rectal ulcer [Recovered/Resolved]
  - Condition aggravated [Recovered/Resolved]
  - Drug abuse [Unknown]

NARRATIVE: CASE EVENT DATE: 201602
